FAERS Safety Report 11873019 (Version 1)
Quarter: 2015Q4

REPORT INFORMATION
  Report Type: Spontaneous
  Country: DE (occurrence: DE)
  Receive Date: 20151228
  Receipt Date: 20151228
  Transmission Date: 20160305
  Serious: Yes (Death, Hospitalization)
  Sender: FDA-Public Use
  Company Number: DE-OTSUKA-2015_017464

PATIENT
  Age: 67 Year
  Sex: Female

DRUGS (3)
  1. ATRA [Suspect]
     Active Substance: TRETINOIN
     Indication: ACUTE MYELOID LEUKAEMIA
     Dosage: 80 MG, IN 1 DAY
     Route: 065
     Dates: start: 20121029, end: 20121105
  2. DACOGEN [Suspect]
     Active Substance: DECITABINE
     Indication: ACUTE MYELOID LEUKAEMIA
     Dosage: 37 MG, IN 1 DAY
     Route: 042
     Dates: start: 20121024, end: 20121028
  3. VALPROIC ACID. [Suspect]
     Active Substance: VALPROIC ACID
     Indication: ACUTE MYELOID LEUKAEMIA
     Dosage: 2000 MG, IN 1 DAY
     Route: 065
     Dates: start: 20120805, end: 20121105

REACTIONS (1)
  - Sepsis [Fatal]

NARRATIVE: CASE EVENT DATE: 20121105
